FAERS Safety Report 24742427 (Version 1)
Quarter: 2024Q4

REPORT INFORMATION
  Report Type: Spontaneous
  Country: US (occurrence: None)
  Receive Date: 20241214
  Receipt Date: 20241214
  Transmission Date: 20250115
  Serious: Yes (Disabling)
  Sender: Public
  Company Number: None

PATIENT
  Age: 8 Year
  Sex: Female
  Weight: 22.5 kg

DRUGS (1)
  1. MUCINEX CHILDRENS STUFFY NOSE AND CHEST CONGESTION [Suspect]
     Active Substance: GUAIFENESIN\PHENYLEPHRINE HYDROCHLORIDE
     Indication: Cough
     Dosage: DAILY ORAL
     Route: 048
     Dates: start: 20241120, end: 20241125

REACTIONS (2)
  - Drug hypersensitivity [None]
  - Product formulation issue [None]

NARRATIVE: CASE EVENT DATE: 20241124
